FAERS Safety Report 14965010 (Version 1)
Quarter: 2018Q2

REPORT INFORMATION
  Report Type: Spontaneous
  Country: PH (occurrence: PH)
  Receive Date: 20180601
  Receipt Date: 20180601
  Transmission Date: 20180711
  Serious: Yes (Death, Other)
  Sender: FDA-Public Use
  Company Number: PH-009507513-1805USA011216

PATIENT
  Age: 64 Year
  Sex: Male

DRUGS (3)
  1. AMINOLEBAN EN [Suspect]
     Active Substance: UNSPECIFIED INGREDIENT
     Indication: SUPPLEMENTATION THERAPY
     Dosage: 50 G, UNKNOWN (TAKEN TWICE ONLY)
     Route: 048
     Dates: start: 20180319, end: 20180320
  2. LOSARTAN POTASSIUM. [Suspect]
     Active Substance: LOSARTAN POTASSIUM
     Indication: HYPERTENSION
     Dosage: UNK UNK, UNKNOWN
     Route: 065
  3. AMINOLEBAN EN [Suspect]
     Active Substance: UNSPECIFIED INGREDIENT
     Indication: VITAMIN SUPPLEMENTATION

REACTIONS (2)
  - Hepatic cirrhosis [Fatal]
  - Product taste abnormal [Unknown]
